FAERS Safety Report 23321107 (Version 2)
Quarter: 2023Q4

REPORT INFORMATION
  Report Type: Spontaneous
  Country: JP (occurrence: JP)
  Receive Date: 20231220
  Receipt Date: 20231227
  Transmission Date: 20240110
  Serious: Yes (Hospitalization)
  Sender: FDA-Public Use
  Company Number: JP-SUN PHARMACEUTICAL INDUSTRIES LTD-2023R1-379562

PATIENT
  Age: 80 Year
  Sex: Male
  Weight: 56 kg

DRUGS (6)
  1. ILUMYA [Suspect]
     Active Substance: TILDRAKIZUMAB-ASMN
     Indication: Psoriasis
     Dosage: 100 MILLIGRAM/DOSE
     Route: 058
     Dates: start: 20220701
  2. ILUMYA [Suspect]
     Active Substance: TILDRAKIZUMAB-ASMN
     Dosage: 100 MILLIGRAM/DOSE
     Route: 058
     Dates: start: 20220729
  3. ILUMYA [Suspect]
     Active Substance: TILDRAKIZUMAB-ASMN
     Dosage: 100 MILLIGRAM/DOSE
     Route: 058
     Dates: start: 20221021
  4. ILUMYA [Suspect]
     Active Substance: TILDRAKIZUMAB-ASMN
     Dosage: 100 MILLIGRAM/DOSE
     Route: 058
     Dates: start: 20230113, end: 20230414
  5. DOVOBET Ointment/Gel Foam [Concomitant]
     Indication: Psoriasis
     Dosage: APPROPRIATE QUANTITY
     Route: 062
  6. LULICONAZOLE [Concomitant]
     Active Substance: LULICONAZOLE
     Indication: Body tinea
     Dosage: APPROPRIATELY
     Route: 062
     Dates: start: 20221021, end: 20230113

REACTIONS (2)
  - Body tinea [Recovered/Resolved]
  - Pleural effusion [Recovered/Resolved]

NARRATIVE: CASE EVENT DATE: 20221021
